FAERS Safety Report 9215170 (Version 1)
Quarter: 2013Q2

REPORT INFORMATION
  Report Type: Report from Study
  Country: BR (occurrence: BR)
  Receive Date: 20130405
  Receipt Date: 20130405
  Transmission Date: 20140414
  Serious: Yes (Other)
  Sender: FDA-Public Use
  Company Number: BR-ABBOTT-12P-020-0985720-00

PATIENT
  Age: 62 Year
  Sex: Female
  Weight: 72 kg

DRUGS (5)
  1. HUMIRA [Suspect]
     Indication: RHEUMATOID ARTHRITIS
     Route: 058
     Dates: start: 20120814
  2. HUMIRA [Suspect]
     Dates: start: 201211
  3. SYNTHROID [Concomitant]
     Indication: THYROID DISORDER
     Route: 048
     Dates: start: 200209
  4. PREDNISONE (PREDSIM) [Concomitant]
  5. TOLREST [Concomitant]
     Indication: ANXIOLYTIC THERAPY

REACTIONS (4)
  - Abdominal hernia [Unknown]
  - Influenza [Not Recovered/Not Resolved]
  - Blood test abnormal [Unknown]
  - Arthralgia [Unknown]
